FAERS Safety Report 7002725-0 (Version None)
Quarter: 2010Q3

REPORT INFORMATION
  Report Type: 
  Country: None (occurrence: None)
  Receive Date: 20100920
  Receipt Date: 20100311
  Transmission Date: 20110219
  Serious: Yes (Other)
  Sender: FDA-Public Use
  Company Number: US-ASTRAZENECA-2009UW19847

PATIENT
  Age: 17817 Day
  Sex: Male
  Weight: 110.3 kg

DRUGS (20)
  1. SEROQUEL [Suspect]
     Indication: SLEEP DISORDER
     Dosage: 200-400MG
     Route: 048
     Dates: start: 20060301, end: 20061201
  2. SEROQUEL [Suspect]
     Indication: AFFECTIVE DISORDER
     Dosage: 200-400MG
     Route: 048
     Dates: start: 20060301, end: 20061201
  3. SEROQUEL [Suspect]
     Route: 048
     Dates: start: 20050318
  4. SEROQUEL [Suspect]
     Route: 048
     Dates: start: 20050318
  5. XANAX XR [Concomitant]
     Indication: ANXIETY
     Dosage: 6-8MG
     Route: 048
     Dates: start: 20060314
  6. ROZEREM [Concomitant]
     Indication: SLEEP DISORDER
     Dates: start: 20060314
  7. AMBIEN CR [Concomitant]
     Indication: SLEEP DISORDER
     Dosage: 12.5 MG , 2 EVERY NIGHT, 20MG
     Dates: start: 20060314
  8. CHLORAL HYDRATE [Concomitant]
     Indication: SLEEP DISORDER
     Dosage: 500MG/5ML, 3 TSP AT NIGHT
     Route: 048
     Dates: start: 20060314
  9. CLONAZEPAM [Concomitant]
     Route: 048
     Dates: start: 20060314
  10. LIPITOR [Concomitant]
     Dates: start: 20060314
  11. EFFEXOR [Concomitant]
     Indication: SLEEP DISORDER
  12. CYMBALTA [Concomitant]
     Dates: start: 20060725
  13. LORTAB [Concomitant]
     Indication: PAIN
     Dosage: 7.5 7.5-5--MG ONE Q 4 HRS, PRN
     Dates: start: 20060725
  14. ZELNORM [Concomitant]
     Indication: GASTRIC DISORDER
     Route: 048
     Dates: start: 20060725
  15. ZELNORM [Concomitant]
     Indication: DIARRHOEA
     Route: 048
     Dates: start: 20060725
  16. METFORMIN [Concomitant]
     Indication: WEIGHT DECREASED
     Dates: start: 20060101
  17. METFORMIN [Concomitant]
     Indication: DECREASED APPETITE
     Dates: start: 20060101
  18. METFORMIN [Concomitant]
     Indication: HEPATIC STEATOSIS
     Dates: start: 20060101
  19. ZETIA [Concomitant]
     Route: 048
     Dates: start: 20070412
  20. CIALIS [Concomitant]
     Dosage: ONE EVERY OTHER DAY IF NEEDED
     Dates: start: 20070412

REACTIONS (7)
  - DIABETES MELLITUS [None]
  - KETOACIDOSIS [None]
  - METABOLIC SYNDROME [None]
  - OBESITY [None]
  - ORGANIC ERECTILE DYSFUNCTION [None]
  - PANCREATITIS [None]
  - WEIGHT INCREASED [None]
